FAERS Safety Report 8467478 (Version 2)
Quarter: 2013Q3

REPORT INFORMATION
  Report Type: Spontaneous
  Country: US (occurrence: None)
  Receive Date: 20120314
  Receipt Date: 20130718
  Transmission Date: 20140515
  Serious: Yes (Disabling, Other)
  Sender: FDA-Public Use
  Company Number: 2012AP000639

PATIENT
  Age: 69 Year
  Sex: Female

DRUGS (3)
  1. ALENDRONATE SODIUM [Suspect]
     Indication: OSTEOPOROSIS
     Dates: start: 200810, end: 200905
  2. ALENDRONATE SODIUM [Suspect]
     Indication: OSTEOPOROSIS
     Dates: start: 2005, end: 200804
  3. ALENDRONATE SODIUM [Suspect]
     Indication: OSTEOPOROSIS
     Dates: start: 200912, end: 201012

REACTIONS (12)
  - Femur fracture [None]
  - Stress fracture [None]
  - Multiple injuries [None]
  - Bone disorder [None]
  - Low turnover osteopathy [None]
  - Anxiety [None]
  - Quality of life decreased [None]
  - Fear of disease [None]
  - Terminal state [None]
  - Condition aggravated [None]
  - Osteoporosis [None]
  - Terminal state [None]
